FAERS Safety Report 24235905 (Version 2)
Quarter: 2024Q4

REPORT INFORMATION
  Report Type: Spontaneous
  Country: FR (occurrence: FR)
  Receive Date: 20240822
  Receipt Date: 20241107
  Transmission Date: 20250115
  Serious: Yes (Other)
  Sender: ROCHE
  Company Number: FR-002147023-NVSC2024FR166914

PATIENT
  Age: 64 Year
  Sex: Female

DRUGS (3)
  1. LUCENTIS [Suspect]
     Active Substance: RANIBIZUMAB
     Indication: Macular oedema
     Dosage: 10 MILLIGRAM PER MILLILITRE
     Route: 050
     Dates: start: 20240709, end: 20240709
  2. LEVOTHYROXINE [Concomitant]
     Active Substance: LEVOTHYROXINE
     Indication: Autoimmune thyroiditis
     Dosage: UNK
     Route: 065
  3. LEVOTHYROXINE [Concomitant]
     Active Substance: LEVOTHYROXINE
     Dosage: UNK
     Route: 065

REACTIONS (7)
  - Fatigue [Not Recovered/Not Resolved]
  - Eye injury [Recovered/Resolved]
  - Cataract [Recovered/Resolved]
  - Paraesthesia [Not Recovered/Not Resolved]
  - Hypokinesia [Not Recovered/Not Resolved]
  - Ocular discomfort [Unknown]
  - Vision blurred [Unknown]

NARRATIVE: CASE EVENT DATE: 20240709
